FAERS Safety Report 10083543 (Version 2)
Quarter: 2014Q2

REPORT INFORMATION
  Report Type: Spontaneous
  Country: PT (occurrence: PT)
  Receive Date: 20140417
  Receipt Date: 20140419
  Transmission Date: 20141212
  Serious: Yes (Other)
  Sender: FDA-Public Use
  Company Number: PT-ROCHE-1384036

PATIENT
  Sex: Female

DRUGS (1)
  1. XOLAIR [Suspect]
     Indication: ASTHMA
     Dosage: FOR  7 MONTHS
     Route: 065
     Dates: start: 201309

REACTIONS (3)
  - Chest pain [Recovering/Resolving]
  - Presyncope [Recovering/Resolving]
  - Asthma [Unknown]
